FAERS Safety Report 21130583 (Version 1)
Quarter: 2022Q3

REPORT INFORMATION
  Report Type: Spontaneous
  Country: US (occurrence: US)
  Receive Date: 20220726
  Receipt Date: 20220726
  Transmission Date: 20221027
  Serious: No
  Sender: FDA-Public Use
  Company Number: US-drreddys-SPO/USA/22/0152609

PATIENT
  Age: 43 Year

DRUGS (1)
  1. ACCUTANE [Suspect]
     Active Substance: ISOTRETINOIN
     Indication: Acne
     Dosage: RMA ISSUE DATE: 30 MARCH 2022 02:25:09 PM, 27 APRIL 2022 11:57:29 AM, 20 MAY 2022 10:49:25 AM AND 16

REACTIONS (1)
  - Blood triglycerides increased [Unknown]
